FAERS Safety Report 10717403 (Version 2)
Quarter: 2015Q4

REPORT INFORMATION
  Report Type: Spontaneous
  Country: CA (occurrence: CA)
  Receive Date: 20150116
  Receipt Date: 20151211
  Transmission Date: 20160304
  Serious: Yes (Disabling, Other)
  Sender: FDA-Public Use
  Company Number: CA-BAYER-2015-003987

PATIENT
  Age: 47 Year
  Sex: Female

DRUGS (7)
  1. LEVOFLOXACIN. [Suspect]
     Active Substance: LEVOFLOXACIN
     Indication: SINUSITIS
     Dosage: 500MG TABLET DAILY DOSE
     Route: 048
     Dates: start: 20101127, end: 20101206
  2. TYLENOL WITH CODEINE [Concomitant]
     Active Substance: ACETAMINOPHEN\CODEINE PHOSPHATE
     Dosage: AS NEEDED
     Route: 048
  3. PREDNISONE. [Concomitant]
     Active Substance: PREDNISONE
     Indication: COSTOCHONDRITIS
     Dosage: 20MG X 5 DAYS
  4. OXYCONTIN [Concomitant]
     Active Substance: OXYCODONE HYDROCHLORIDE
     Dosage: AS NEEDED
     Route: 048
  5. TECTA [Concomitant]
     Active Substance: PANTOPRAZOLE MAGNESIUM
     Indication: GASTROOESOPHAGEAL REFLUX DISEASE
     Dosage: 40MG ONCE DAILY
     Route: 048
  6. CIPROFLOXACIN. [Suspect]
     Active Substance: CIPROFLOXACIN
     Indication: URINARY TRACT INFECTION
     Dosage: 1000MG TABLET DAILY DOSE
     Route: 048
     Dates: start: 20100722, end: 20100729
  7. SACCHAROMYCES BOULARDII [Concomitant]
     Active Substance: SACCHAROMYCES CEREVISIAE
     Indication: CONSTIPATION
     Dosage: ONCE DAILY

REACTIONS (27)
  - Extraocular muscle disorder [Recovered/Resolved]
  - Fatigue [Not Recovered/Not Resolved]
  - Gastrooesophageal reflux disease [Recovered/Resolved]
  - Photophobia [Recovered/Resolved]
  - Illusion [Recovered/Resolved]
  - Blood pressure decreased [Recovered/Resolved]
  - Oropharyngeal pain [Recovered/Resolved]
  - Costochondritis [Not Recovered/Not Resolved]
  - Myalgia [Recovered/Resolved]
  - Bursitis [None]
  - Dizziness [Recovered/Resolved]
  - Lymphadenitis [Recovered/Resolved]
  - Dyspnoea [Recovered/Resolved]
  - Dysphagia [Recovered/Resolved]
  - Tremor [Recovered/Resolved]
  - Musculoskeletal pain [Not Recovered/Not Resolved]
  - Peripheral swelling [None]
  - Joint crepitation [None]
  - Peripheral swelling [None]
  - Heart rate irregular [Recovered/Resolved]
  - Pollakiuria [Not Recovered/Not Resolved]
  - Sinusitis [None]
  - Abdominal pain [Recovering/Resolving]
  - Pelvic pain [Recovering/Resolving]
  - Inflammation [None]
  - Dysphonia [Recovered/Resolved]
  - Meniscus injury [None]

NARRATIVE: CASE EVENT DATE: 201007
